FAERS Safety Report 12182523 (Version 1)
Quarter: 2016Q1

REPORT INFORMATION
  Report Type: Spontaneous
  Country: FR (occurrence: FR)
  Receive Date: 20160316
  Receipt Date: 20160316
  Transmission Date: 20160526
  Serious: Yes (Other)
  Sender: FDA-Public Use
  Company Number: FR-GLAXOSMITHKLINE-FR2015GSK174571

PATIENT
  Sex: Female
  Weight: 55 kg

DRUGS (3)
  1. LAMICTAL [Suspect]
     Active Substance: LAMOTRIGINE
     Indication: EPILEPSY
     Dosage: UNK
  2. KEPPRA [Concomitant]
     Active Substance: LEVETIRACETAM
     Indication: EPILEPSY
     Dosage: UNK
     Dates: start: 20160127, end: 20160203
  3. KEPPRA [Concomitant]
     Active Substance: LEVETIRACETAM
     Dosage: UNK
     Dates: start: 20160203

REACTIONS (9)
  - Inappropriate schedule of drug administration [Unknown]
  - Drug level below therapeutic [Unknown]
  - Epilepsy [Recovered/Resolved]
  - Drug ineffective [Unknown]
  - Disorientation [Unknown]
  - Exposure during pregnancy [Unknown]
  - Loss of consciousness [Recovered/Resolved]
  - Drug level decreased [Unknown]
  - Somnolence [Unknown]

NARRATIVE: CASE EVENT DATE: 2015
